FAERS Safety Report 8300713-5 (Version None)
Quarter: 2012Q2

REPORT INFORMATION
  Report Type: 
  Country: None (occurrence: None)
  Receive Date: 20120420
  Receipt Date: 20120416
  Transmission Date: 20120825
  Serious: No
  Sender: FDA-Public Use
  Company Number: PHEH2012US008323

PATIENT
  Sex: Female
  Weight: 80.272 kg

DRUGS (4)
  1. TASIGNA [Suspect]
     Dosage: 300 MG, BID
     Route: 048
  2. ESTRATEST [Concomitant]
  3. AMBIEN [Concomitant]
  4. MAGNESIUM [Concomitant]

REACTIONS (1)
  - MIGRAINE [None]
